FAERS Safety Report 4972887-5 (Version None)
Quarter: 2006Q2

REPORT INFORMATION
  Report Type: 
  Country: None (occurrence: None)
  Receive Date: 20060410
  Receipt Date: 20060322
  Transmission Date: 20061013
  Serious: Yes (Other)
  Sender: FDA-Public Use
  Company Number: ENTC2006-0101

PATIENT
  Age: 79 Year
  Sex: Male
  Weight: 90 kg

DRUGS (1)
  1. STALEVO 100 [Suspect]
     Indication: PARKINSON'S DISEASE
     Dosage: 300 MG, 23 IN 1 D, ORAL
     Route: 048
     Dates: start: 20050823, end: 20060206

REACTIONS (4)
  - ANAEMIA [None]
  - BONE MARROW DISORDER [None]
  - NEOPLASM MALIGNANT [None]
  - SYNCOPE [None]
